FAERS Safety Report 4491860-7 (Version None)
Quarter: 2004Q4

REPORT INFORMATION
  Report Type: 
  Country: None (occurrence: None)
  Receive Date: 20041103
  Receipt Date: 20041026
  Transmission Date: 20050328
  Serious: Yes (Hospitalization)
  Sender: FDA-Public Use
  Company Number: PHEH2004US11593

PATIENT
  Age: 13 Year
  Sex: Female

DRUGS (3)
  1. TEGRETOL-XR [Suspect]
     Indication: CONVULSION
     Dosage: 400 MG BD AND 200 MG QHS
     Route: 048
     Dates: start: 20041006
  2. TRILEPTAL [Suspect]
     Indication: CONVULSION
     Dosage: 300 MG, BID
     Route: 048
     Dates: start: 20041001
  3. BENZODIAZEPINES [Suspect]

REACTIONS (8)
  - ACUTE PSYCHOSIS [None]
  - ADJUSTMENT DISORDER [None]
  - AGITATION [None]
  - CONVULSION [None]
  - DELIRIUM [None]
  - FRONTAL LOBE EPILEPSY [None]
  - SCREAMING [None]
  - SPEECH DISORDER [None]
